FAERS Safety Report 9633078 (Version 1)
Quarter: 2013Q4

REPORT INFORMATION
  Report Type: Report from Study
  Country: US (occurrence: US)
  Receive Date: 20131018
  Receipt Date: 20131018
  Transmission Date: 20140711
  Serious: Yes (Other)
  Sender: FDA-Public Use
  Company Number: US-B.I. PHARMACEUTICALS,INC./RIDGEFIELD-2013-BI-32929GD

PATIENT
  Sex: Female

DRUGS (10)
  1. MELOXICAM [Suspect]
     Indication: PROCEDURAL PAIN
     Dosage: 7.5 MG ORALLY IF AGED } 75 YEARS; OTHERWISE 15 MG
     Route: 048
  2. CLONIDINE [Suspect]
     Indication: PROCEDURAL PAIN
     Dosage: 100 MCG
     Route: 062
  3. OXYCODONE [Suspect]
     Indication: PROCEDURAL PAIN
     Dosage: 10 MG ORALLY IF AGED } 80 YEARS; 20 MG OTHERWISE
     Route: 048
  4. BUPIVACAINE [Suspect]
     Indication: PROCEDURAL PAIN
     Dosage: 0.5% (10, 12.5 OR 15 MG)
  5. BUPIVACAINE [Suspect]
     Dosage: 30 ML (0.5%), DEEP INJECTION
  6. BUPIVACAINE [Suspect]
     Dosage: 40 ML (0.25%), SUPERFICIAL INJECTION
  7. ADRENALINE [Suspect]
     Indication: PROCEDURAL PAIN
     Dosage: 30 ML
  8. MORPHINE [Suspect]
     Indication: PROCEDURAL PAIN
     Dosage: 8 MG
  9. METHYLPREDNISOLONE [Suspect]
     Indication: PROCEDURAL PAIN
     Dosage: 40 MG
  10. CEFAZOLIN [Suspect]
     Indication: PROCEDURAL PAIN
     Dosage: 1100 MG
     Route: 054

REACTIONS (1)
  - Delirium [Recovered/Resolved]
